FAERS Safety Report 8257499-2 (Version None)
Quarter: 2012Q2

REPORT INFORMATION
  Report Type: 
  Country: None (occurrence: None)
  Receive Date: 20120403
  Receipt Date: 20120113
  Transmission Date: 20120825
  Serious: Yes (Other)
  Sender: FDA-Public Use
  Company Number: FR-PFIZER INC-2012081557

PATIENT
  Age: 13 Year
  Sex: Male

DRUGS (5)
  1. PRISTINAMYCIN [Suspect]
     Indication: LUNG DISORDER
     Dosage: 2 DF
     Route: 048
     Dates: start: 20111231, end: 20120101
  2. HELICIDINE [Concomitant]
  3. MAXILASE [Concomitant]
  4. CEFPODOXIME PROXETIL [Suspect]
     Indication: LUNG DISORDER
     Dosage: 100 MG, 2X/DAY
     Route: 048
     Dates: start: 20111228, end: 20111231
  5. LOCABIOTAL [Concomitant]

REACTIONS (1)
  - ANGIOEDEMA [None]
